FAERS Safety Report 7815941-2 (Version None)
Quarter: 2011Q4

REPORT INFORMATION
  Report Type: 
  Country: None (occurrence: None)
  Receive Date: 20111014
  Receipt Date: 20110923
  Transmission Date: 20120403
  Serious: Yes (Hospitalization)
  Sender: FDA-Public Use
  Company Number: FR-ROCHE-1002418

PATIENT
  Sex: Male

DRUGS (14)
  1. PANTOPRAZOLE [Concomitant]
  2. ATORVASTATIN CALCIUM [Concomitant]
  3. PREDNISONE [Concomitant]
  4. BACTRIM DS [Concomitant]
  5. HYDROCHLOROTHIAZIDE [Concomitant]
  6. ASPIRIN [Concomitant]
     Dosage: FORM: POWDER FOR ORAL SOLUTION
  7. CACIT [Concomitant]
  8. UVEDOSE [Concomitant]
  9. MYCOPHENOLATE MOFETIL (CELLCEPT) [Suspect]
     Indication: CONGENITAL SYPHILITIC OSTEOCHONDRITIS
     Route: 048
     Dates: start: 20110817, end: 20110827
  10. PREVISCAN [Concomitant]
  11. ENALAPRIL MALEATE [Concomitant]
  12. CORGARD [Concomitant]
  13. NASONEX [Concomitant]
     Dosage: 50 I?G/DOSE
  14. FLECAINIDE ACETATE [Concomitant]

REACTIONS (3)
  - DELIRIUM [None]
  - DEPRESSION [None]
  - AFFECTIVE DISORDER [None]
